FAERS Safety Report 13798146 (Version 1)
Quarter: 2017Q3

REPORT INFORMATION
  Report Type: Report from Study
  Country: US (occurrence: US)
  Receive Date: 20170727
  Receipt Date: 20170727
  Transmission Date: 20171127
  Serious: Yes (Other)
  Sender: FDA-Public Use
  Company Number: US-CIPLA LTD.-2017US13447

PATIENT

DRUGS (3)
  1. LAPATINIB [Suspect]
     Active Substance: LAPATINIB
     Indication: PANCREATIC CARCINOMA METASTATIC
     Dosage: 1250 MG, QD, ON DAYS 1 TO 14 OF 21-DAY CYCLE
     Route: 048
  2. CAPECITABINE. [Suspect]
     Active Substance: CAPECITABINE
     Indication: PANCREATIC CARCINOMA METASTATIC
     Dosage: 1000 MG/M2, BID ON DAYS 1 TO 14 OF 21 DAY CYCLE
     Route: 048
  3. GEMCITABINE [Suspect]
     Active Substance: GEMCITABINE\GEMCITABINE HYDROCHLORIDE
     Indication: ADENOCARCINOMA PANCREAS
     Dosage: UNK
     Route: 065

REACTIONS (1)
  - Disease progression [Unknown]
